FAERS Safety Report 8116618-9 (Version None)
Quarter: 2012Q1

REPORT INFORMATION
  Report Type: 
  Country: None (occurrence: None)
  Receive Date: 20120206
  Receipt Date: 20120124
  Transmission Date: 20120608
  Serious: Yes (Other)
  Sender: FDA-Public Use
  Company Number: PHHY2011EC109989

PATIENT
  Sex: Female

DRUGS (3)
  1. DIOVAN HCT [Suspect]
     Indication: HYPERTENSION
     Dosage: 1 DF (160/12.5 MG) DAILY
     Route: 048
     Dates: start: 20101001, end: 20110501
  2. AMLODIPINE [Suspect]
     Dosage: 5 MG, BID
     Route: 048
  3. HYDROCHLOROTHIAZIDE [Suspect]
     Dosage: 12.5 MG, DAILY
     Route: 048
     Dates: start: 20120105

REACTIONS (8)
  - DIZZINESS [None]
  - VISUAL IMPAIRMENT [None]
  - MATERNAL EXPOSURE DURING PREGNANCY [None]
  - PRE-ECLAMPSIA [None]
  - CONSTIPATION [None]
  - NORMAL NEWBORN [None]
  - DEPRESSION [None]
  - PARAESTHESIA [None]
